FAERS Safety Report 10282198 (Version 3)
Quarter: 2014Q3

REPORT INFORMATION
  Report Type: Spontaneous
  Country: US (occurrence: US)
  Receive Date: 20140707
  Receipt Date: 20140822
  Transmission Date: 20150326
  Serious: Yes (Other)
  Sender: FDA-Public Use
  Company Number: US-PFIZER INC-2014185203

PATIENT
  Age: 54 Year
  Sex: Female
  Weight: 77 kg

DRUGS (1)
  1. LIPITOR [Suspect]
     Active Substance: ATORVASTATIN CALCIUM
     Indication: BLOOD CHOLESTEROL INCREASED
     Dosage: 10 MG, DAILY
     Route: 048
     Dates: start: 20030213, end: 20030607

REACTIONS (7)
  - Onychomycosis [Unknown]
  - Arthralgia [Unknown]
  - Type 2 diabetes mellitus [Not Recovered/Not Resolved]
  - Fungal infection [Unknown]
  - Tinea pedis [Unknown]
  - Neuropathy peripheral [Unknown]
  - Skin ulcer [Unknown]

NARRATIVE: CASE EVENT DATE: 20030318
